FAERS Safety Report 6837363-3 (Version None)
Quarter: 2010Q3

REPORT INFORMATION
  Report Type: 
  Country: None (occurrence: None)
  Receive Date: 20100713
  Receipt Date: 20070511
  Transmission Date: 20110219
  Serious: No
  Sender: FDA-Public Use
  Company Number: US-PFIZER INC-2007039251

PATIENT
  Sex: Female
  Weight: 79.545 kg

DRUGS (16)
  1. CHANTIX [Suspect]
     Indication: SMOKING CESSATION THERAPY
     Dates: start: 20070329
  2. CALCIUM [Concomitant]
  3. TRICOR [Concomitant]
  4. MULTI-VITAMINS [Concomitant]
  5. FISH OIL [Concomitant]
  6. VITAMIN E [Concomitant]
  7. ACETYLSALICYLIC ACID [Concomitant]
  8. VITAMIN D [Concomitant]
  9. BENICAR [Concomitant]
  10. ZETIA [Concomitant]
  11. ZOCOR [Concomitant]
  12. HYDROCHLOROTHIAZIDE [Concomitant]
  13. ATENOLOL [Concomitant]
  14. MONTELUKAST SODIUM [Concomitant]
  15. ALL OTHER THERAPEUTIC PRODUCTS [Concomitant]
  16. OTHER RESPIRATORY SYSTEM PRODUCTS [Concomitant]

REACTIONS (2)
  - NAUSEA [None]
  - VOMITING [None]
